FAERS Safety Report 7416798-4 (Version None)
Quarter: 2011Q1

REPORT INFORMATION
  Report Type: 
  Country: None (occurrence: None)
  Receive Date: 20110302
  Receipt Date: 20101105
  Transmission Date: 20110831
  Serious: No
  Sender: FDA-Public Use
  Company Number: 019385

PATIENT
  Sex: Female

DRUGS (1)
  1. CIMZIA [Suspect]
     Indication: CROHN'S DISEASE
     Dosage: SUBCUTANEOUS
     Route: 058
     Dates: start: 20100921, end: 20101001

REACTIONS (11)
  - INJECTION SITE HAEMATOMA [None]
  - IRRITABILITY [None]
  - LOCAL SWELLING [None]
  - HORDEOLUM [None]
  - HAEMATOCHEZIA [None]
  - WEIGHT INCREASED [None]
  - INJECTION SITE HAEMORRHAGE [None]
  - INJECTION SITE RASH [None]
  - ABDOMINAL DISTENSION [None]
  - CRYING [None]
  - INJECTION SITE DISCOLOURATION [None]
